FAERS Safety Report 4569010-8 (Version None)
Quarter: 2005Q1

REPORT INFORMATION
  Report Type: 
  Country: None (occurrence: None)
  Receive Date: 20050203
  Receipt Date: 20050121
  Transmission Date: 20050727
  Serious: Yes (Hospitalization, Other)
  Sender: FDA-Public Use
  Company Number: 200510700GDDC

PATIENT
  Age: 79 Year
  Sex: Male

DRUGS (4)
  1. ANANDRON [Suspect]
     Indication: PROSTATE CANCER
     Route: 048
     Dates: start: 20041108, end: 20050113
  2. LEVOFLOXACIN [Concomitant]
     Indication: RESPIRATORY TRACT INFECTION
     Route: 048
     Dates: start: 20041211, end: 20041201
  3. LORAZEPAM [Concomitant]
     Route: 048
  4. BUSERELIN [Concomitant]
     Indication: PROSTATE CANCER
     Dosage: DOSE: UNK
     Route: 058
     Dates: start: 20041107, end: 20041108

REACTIONS (4)
  - ALVEOLITIS ALLERGIC [None]
  - CHEST X-RAY ABNORMAL [None]
  - DIABETES MELLITUS [None]
  - DYSPNOEA [None]
